FAERS Safety Report 9620761 (Version 2)
Quarter: 2013Q4

REPORT INFORMATION
  Report Type: Spontaneous
  Country: US (occurrence: US)
  Receive Date: 20131015
  Receipt Date: 20131015
  Transmission Date: 20140711
  Serious: No
  Sender: FDA-Public Use
  Company Number: US-B.I. PHARMACEUTICALS,INC./RIDGEFIELD-2013-BI-15821BP

PATIENT
  Age: 67 Year
  Sex: Male

DRUGS (5)
  1. COMBIVENT [Suspect]
     Indication: CHRONIC OBSTRUCTIVE PULMONARY DISEASE
     Dosage: STRENGTH: 20 MCG / 100 MCG
     Route: 055
     Dates: start: 20130531
  2. COMBIVENT [Suspect]
     Dosage: STRENGTH: 20 MCG / 100 MCG, DAILY DOSE 80 MCG / 400 MCG (8 PUFFS A DAY)
     Route: 055
     Dates: start: 20130502
  3. COMBIVENT [Suspect]
     Indication: CHRONIC OBSTRUCTIVE PULMONARY DISEASE
     Dosage: STRENGTH: 18 MCG / 103 MCG; DAILY DOSE: 72 MCG / 412 MCG
     Route: 055
     Dates: end: 20130530
  4. VASOTEC [Concomitant]
     Indication: HYPERTENSION
     Dosage: 10 MG
     Route: 048
  5. ATENOLOL [Concomitant]
     Indication: ATRIAL FIBRILLATION
     Dosage: 25 MG
     Route: 048

REACTIONS (4)
  - Anxiety [Recovered/Resolved]
  - Drug effect decreased [Not Recovered/Not Resolved]
  - Dyspnoea [Not Recovered/Not Resolved]
  - Overdose [Not Recovered/Not Resolved]
